FAERS Safety Report 18756620 (Version 1)
Quarter: 2021Q1

REPORT INFORMATION
  Report Type: Spontaneous
  Country: US (occurrence: US)
  Receive Date: 20210118
  Receipt Date: 20210118
  Transmission Date: 20210419
  Serious: Yes (Death)
  Sender: FDA-Public Use
  Company Number: None

PATIENT
  Age: 71 Year
  Sex: Male

DRUGS (4)
  1. NOVOLOG [Concomitant]
     Active Substance: INSULIN ASPART
  2. VELTASSA [Suspect]
     Active Substance: PATIROMER
     Indication: HYPERKALAEMIA
     Dosage: ?          OTHER FREQUENCY:EVERY OTHER DAY;?
     Route: 048
     Dates: start: 20190830, end: 20210118
  3. LANTUS [Concomitant]
     Active Substance: INSULIN GLARGINE
  4. AMLODIPINE [Concomitant]
     Active Substance: AMLODIPINE BESYLATE

REACTIONS (1)
  - Death [None]

NARRATIVE: CASE EVENT DATE: 20210118
